FAERS Safety Report 6913935-2 (Version None)
Quarter: 2010Q3

REPORT INFORMATION
  Report Type: 
  Country: None (occurrence: None)
  Receive Date: 20100806
  Receipt Date: 20100806
  Transmission Date: 20110219
  Serious: Yes (Hospitalization)
  Sender: FDA-Public Use
  Company Number: None

PATIENT
  Age: 66 Year
  Sex: Male

DRUGS (1)
  1. LISINOPRIL [Suspect]
     Indication: ANGIOEDEMA
     Dosage: 20 MG EVERY DAY PO
     Route: 048
     Dates: start: 20051117, end: 20100618

REACTIONS (1)
  - ANGIOEDEMA [None]
